FAERS Safety Report 5610195-X (Version None)
Quarter: 2008Q1

REPORT INFORMATION
  Report Type: 
  Country: None (occurrence: None)
  Receive Date: 20080131
  Receipt Date: 20080121
  Transmission Date: 20080703
  Serious: Yes (Other)
  Sender: FDA-Public Use
  Company Number: DE-PFIZER INC-2008006823

PATIENT
  Age: 46 Year
  Sex: Female

DRUGS (2)
  1. LYRICA [Suspect]
     Route: 048
  2. ARCOXIA [Concomitant]
     Route: 048

REACTIONS (3)
  - ANKLE FRACTURE [None]
  - FRACTURE [None]
  - LOWER LIMB FRACTURE [None]
